FAERS Safety Report 17258227 (Version 1)
Quarter: 2020Q1

REPORT INFORMATION
  Report Type: Spontaneous
  Country: JP (occurrence: JP)
  Receive Date: 20200110
  Receipt Date: 20200110
  Transmission Date: 20200409
  Serious: Yes (Death, Hospitalization, Other)
  Sender: FDA-Public Use
  Company Number: JP-GLAXOSMITHKLINE-JP2020GSK001955

PATIENT
  Age: 84 Year
  Sex: Female

DRUGS (9)
  1. PREDNISOLONE. [Suspect]
     Active Substance: PREDNISOLONE
     Dosage: 80 MG, QD
  2. PREDNISOLONE. [Suspect]
     Active Substance: PREDNISOLONE
     Dosage: 40 MG, QD
  3. TRIMETHOPRIM + SULFAMETHOXAZOL [Suspect]
     Active Substance: SULFAMERAZINE SODIUM\TRIMETHOPRIM
     Indication: PNEUMOCYSTIS JIROVECII PNEUMONIA
     Dosage: 7.5 MG/KG, QD
  4. ACYCLOVIR. [Suspect]
     Active Substance: ACYCLOVIR
     Indication: VARICELLA ZOSTER VIRUS INFECTION
     Dosage: 500 MG, BID (EVERY 12 HOUR)
     Route: 042
  5. VANCOMYCIN [Suspect]
     Active Substance: VANCOMYCIN
     Indication: PNEUMONIA
     Dosage: UNK, 500 MG TO 1 G AT A TIME
  6. VALACYCLOVIR [Concomitant]
     Active Substance: VALACYCLOVIR HYDROCHLORIDE
     Indication: HERPES ZOSTER
     Dosage: 1 G, QD
  7. CEFMETAZOLE [Suspect]
     Active Substance: CEFMETAZOLE
     Indication: PNEUMONIA
     Dosage: 2 G, BID
  8. PREDNISOLONE. [Suspect]
     Active Substance: PREDNISOLONE
     Indication: IMMUNOSUPPRESSION
     Dosage: UNK, TITRATED BETWEEN 10 MG AND 80 MG DAILY
  9. AMPICILLIN AND SULBACTAM [Concomitant]
     Active Substance: AMPICILLIN SODIUM\SULBACTAM SODIUM
     Indication: PNEUMONIA ASPIRATION
     Dosage: 3 G, BID (EVERY 12 HOUR)

REACTIONS (23)
  - Mental status changes [Not Recovered/Not Resolved]
  - Lung opacity [Unknown]
  - Klebsiella infection [Unknown]
  - Pneumonia aspiration [Unknown]
  - Coma [Unknown]
  - Escherichia infection [Unknown]
  - Acute respiratory failure [Unknown]
  - Rash vesicular [Unknown]
  - Pneumocystis jirovecii pneumonia [Fatal]
  - Breath sounds abnormal [Unknown]
  - Herpes zoster [Unknown]
  - Eschar [Unknown]
  - Pyrexia [Unknown]
  - Condition aggravated [Unknown]
  - Dyspnoea [Unknown]
  - Lung infiltration [Unknown]
  - Blood beta-D-glucan increased [Unknown]
  - Pulmonary function test decreased [Unknown]
  - Varicella zoster virus infection [Fatal]
  - Renal impairment [Unknown]
  - Drug ineffective [Unknown]
  - Oxygen saturation decreased [Recovered/Resolved]
  - Corynebacterium infection [Unknown]
